FAERS Safety Report 7042247-4 (Version None)
Quarter: 2010Q4

REPORT INFORMATION
  Report Type: 
  Country: None (occurrence: None)
  Receive Date: 20101013
  Receipt Date: 20101001
  Transmission Date: 20110411
  Serious: Yes (Other)
  Sender: FDA-Public Use
  Company Number: US-JNJFOC-20101002909

PATIENT
  Age: 43 Year
  Sex: Male

DRUGS (6)
  1. ITRACONAZOLE [Suspect]
     Indication: ACANTHAMOEBA KERATITIS
     Route: 048
  2. CHLORHEXIDINE GLUCONATE [Suspect]
     Indication: ACANTHAMOEBA KERATITIS
     Route: 061
  3. NEOMYCIN [Suspect]
     Indication: ACANTHAMOEBA KERATITIS
     Route: 061
  4. POLYHEXAMETHYLENE BIGUANIDE [Suspect]
     Indication: ACANTHAMOEBA KERATITIS
     Route: 065
  5. ACYCLOVIR [Concomitant]
     Indication: ACANTHAMOEBA KERATITIS
     Route: 048
  6. BACITRACIN W/POLYMYXIN B [Concomitant]
     Indication: PRODUCT USED FOR UNKNOWN INDICATION
     Route: 061

REACTIONS (2)
  - ACANTHAMOEBA KERATITIS [None]
  - OFF LABEL USE [None]
